FAERS Safety Report 9541847 (Version 1)
Quarter: 2013Q2

REPORT INFORMATION
  Report Type: Spontaneous
  Country: US (occurrence: None)
  Receive Date: 20130524
  Receipt Date: 20130524
  Transmission Date: 20140414
  Serious: No
  Sender: FDA-Public Use
  Company Number: PHEH2013US000694

PATIENT
  Age: 25 Year
  Sex: Female
  Weight: 54.4 kg

DRUGS (1)
  1. GILENYA (FINGOLIMOD) CAPSULE, 0.5 MG [Suspect]
     Dosage: 0.5 MG, BID, ORAL
     Route: 048
     Dates: start: 20130103

REACTIONS (3)
  - Overdose [None]
  - Headache [None]
  - Somnolence [None]
